FAERS Safety Report 4593551-0 (Version None)
Quarter: 2005Q1

REPORT INFORMATION
  Report Type: 
  Country: None (occurrence: None)
  Receive Date: 20050224
  Receipt Date: 20040830
  Transmission Date: 20050727
  Serious: No
  Sender: FDA-Public Use
  Company Number: US-BRISTOL-MYERS SQUIBB COMPANY-12690459

PATIENT
  Age: 19 Year
  Sex: Male

DRUGS (1)
  1. EXCEDRIN (MIGRAINE) [Suspect]
     Dosage: DOSE VALUE: TOOK ^EITHER 6 OR 7 GELTABS^.
     Route: 048
     Dates: start: 20040830, end: 20040830

REACTIONS (3)
  - ABDOMINAL PAIN UPPER [None]
  - MEDICATION ERROR [None]
  - SOMNOLENCE [None]
